FAERS Safety Report 10139543 (Version 1)
Quarter: 2014Q2

REPORT INFORMATION
  Report Type: Spontaneous
  Country: US (occurrence: US)
  Receive Date: 20140429
  Receipt Date: 20140429
  Transmission Date: 20141212
  Serious: No
  Sender: FDA-Public Use
  Company Number: US-009507513-1404USA012202

PATIENT
  Age: 46 Year
  Sex: Male

DRUGS (4)
  1. CLARITIN [Suspect]
     Indication: HYPERSENSITIVITY
     Dosage: UNK, PRN
     Route: 048
  2. CLARITIN [Suspect]
     Dosage: 10 MG, BID
     Route: 048
     Dates: start: 20140406
  3. VICODIN [Concomitant]
     Indication: PRODUCT USED FOR UNKNOWN INDICATION
     Dosage: UNK, UNKNOWN
  4. IBUPROFEN [Suspect]
     Indication: PRODUCT USED FOR UNKNOWN INDICATION
     Dosage: UNK, UNKNOWN

REACTIONS (1)
  - Overdose [Unknown]
